FAERS Safety Report 7671125-2 (Version None)
Quarter: 2011Q3

REPORT INFORMATION
  Report Type: 
  Country: None (occurrence: None)
  Receive Date: 20110711
  Receipt Date: 20110711
  Transmission Date: 20111222
  Serious: Yes (Disabling)
  Sender: FDA-Public Use
  Company Number: IPC201104-000663

PATIENT
  Sex: Female

DRUGS (2)
  1. REGLAN [Suspect]
     Dosage: ORAL
     Route: 048
     Dates: start: 20070101, end: 20100501
  2. METOCLOPRAMIDE HYDROCHLORIDE [Suspect]
     Dosage: ORAL
     Route: 048
     Dates: start: 20070101, end: 20100501

REACTIONS (3)
  - EXTRAPYRAMIDAL DISORDER [None]
  - TARDIVE DYSKINESIA [None]
  - MOVEMENT DISORDER [None]
